FAERS Safety Report 5580391-9 (Version None)
Quarter: 2008Q1

REPORT INFORMATION
  Report Type: 
  Country: None (occurrence: None)
  Receive Date: 20080103
  Receipt Date: 20071226
  Transmission Date: 20080703
  Serious: Yes (Other)
  Sender: FDA-Public Use
  Company Number: JP-ROCHE-532885

PATIENT
  Age: 75 Year
  Sex: Male
  Weight: 61 kg

DRUGS (4)
  1. PEGASYS [Suspect]
     Route: 058
     Dates: start: 20070823
  2. SALCOAT [Concomitant]
     Dosage: ROUTE: OROPHARINGEAL
     Route: 050
     Dates: start: 20070604
  3. AZUNOL [Concomitant]
     Dosage: ROUTE: OROPHARINGEAL, DOSE FORM: GARGLE
     Route: 050
     Dates: start: 20070604
  4. DEXALTIN [Concomitant]
     Route: 061
     Dates: start: 20070904

REACTIONS (2)
  - LICHEN PLANUS [None]
  - ORAL LICHEN PLANUS [None]
